FAERS Safety Report 6899789-1 (Version None)
Quarter: 2010Q3

REPORT INFORMATION
  Report Type: 
  Country: None (occurrence: None)
  Receive Date: 20100708
  Receipt Date: 20090708
  Transmission Date: 20110219
  Serious: Yes (Hospitalization, Other)
  Sender: FDA-Public Use
  Company Number: 2009238189

PATIENT
  Sex: Female

DRUGS (2)
  1. CHANTIX [Suspect]
     Indication: SMOKING CESSATION THERAPY
     Dates: start: 20080101, end: 20080101
  2. PROPOXYPHENE HCL [Concomitant]

REACTIONS (11)
  - ABNORMAL DREAMS [None]
  - AGITATION [None]
  - ANXIETY [None]
  - DECREASED INTEREST [None]
  - DEPRESSION SUICIDAL [None]
  - DIZZINESS [None]
  - HYPERTONIA [None]
  - INSOMNIA [None]
  - NAUSEA [None]
  - SUICIDAL BEHAVIOUR [None]
  - SUICIDAL IDEATION [None]
